FAERS Safety Report 6868999-1 (Version None)
Quarter: 2010Q3

REPORT INFORMATION
  Report Type: 
  Country: None (occurrence: None)
  Receive Date: 20100722
  Receipt Date: 20080816
  Transmission Date: 20110219
  Serious: No
  Sender: FDA-Public Use
  Company Number: US-PFIZER INC-2008055026

PATIENT
  Age: 58 Year
  Sex: Male
  Weight: 84.1 kg

DRUGS (3)
  1. CHANTIX [Suspect]
     Indication: SMOKING CESSATION THERAPY
     Dates: start: 20080101
  2. SEROQUEL [Concomitant]
  3. WARFARIN SODIUM [Concomitant]

REACTIONS (1)
  - DRUG SCREEN FALSE POSITIVE [None]
